FAERS Safety Report 21929830 (Version 1)
Quarter: 2023Q1

REPORT INFORMATION
  Report Type: Spontaneous
  Country: US (occurrence: US)
  Receive Date: 20230131
  Receipt Date: 20230131
  Transmission Date: 20230418
  Serious: No
  Sender: FDA-Public Use
  Company Number: US-SA-2023SA031004

PATIENT
  Age: 10 Month
  Sex: Female
  Weight: 10.1 kg

DRUGS (3)
  1. LUMIZYME [Suspect]
     Active Substance: ALGLUCOSIDASE ALFA
     Indication: Glycogen storage disease type II
     Dosage: 40 MG/KG
     Route: 042
     Dates: start: 20220307
  2. TYLENOL [Concomitant]
     Active Substance: ACETAMINOPHEN
     Indication: Premedication
     Dosage: 10 MG/KG
     Route: 048
     Dates: start: 20220307
  3. BENADRYL [Concomitant]
     Active Substance: DIPHENHYDRAMINE HYDROCHLORIDE
     Indication: Premedication
     Dosage: 0.5 MG/KG
     Route: 048
     Dates: start: 20220307

REACTIONS (1)
  - Blood immunoglobulin G increased [Recovered/Resolved]
